FAERS Safety Report 8818750 (Version 1)
Quarter: 2012Q4

REPORT INFORMATION
  Report Type: 
  Country: US (occurrence: US)
  Receive Date: 20121001
  Receipt Date: 20121001
  Transmission Date: 20130627
  Serious: Yes (Other)
  Sender: FDA-Public Use
  Company Number: US-ROCHE-1124700

PATIENT
  Sex: Female

DRUGS (5)
  1. HERCEPTIN [Suspect]
     Indication: BREAST CANCER FEMALE
     Dosage: loading dose
     Route: 065
     Dates: start: 20000217
  2. HERCEPTIN [Suspect]
     Dosage: maintenance dose
     Route: 065
  3. TAXOL [Concomitant]
  4. SENOKOT [Concomitant]
  5. AUGMENTIN [Concomitant]
     Route: 048

REACTIONS (26)
  - Metastases to bone [Unknown]
  - Urticaria [Unknown]
  - Fatigue [Unknown]
  - Paraesthesia [Unknown]
  - Malaise [Unknown]
  - Skin mass [Unknown]
  - Pollakiuria [Unknown]
  - Mass [Unknown]
  - Respiratory tract infection [Unknown]
  - Alopecia [Unknown]
  - Stomatitis [Unknown]
  - Neutropenia [Unknown]
  - Anaemia [Unknown]
  - Asthenia [Unknown]
  - Insomnia [Unknown]
  - Fall [Unknown]
  - Decreased appetite [Unknown]
  - Constipation [Unknown]
  - Diarrhoea [Unknown]
  - Weight decreased [Unknown]
  - Sinusitis [Unknown]
  - Cough [Unknown]
  - Rhinorrhoea [Unknown]
  - Paraesthesia [Unknown]
  - Malignant neoplasm of thorax [Unknown]
  - Micturition urgency [Unknown]
